FAERS Safety Report 16802186 (Version 2)
Quarter: 2019Q3

REPORT INFORMATION
  Report Type: Spontaneous
  Country: US (occurrence: US)
  Receive Date: 20190912
  Receipt Date: 20190920
  Transmission Date: 20191005
  Serious: Yes (Hospitalization, Other)
  Sender: FDA-Public Use
  Company Number: US-ELI_LILLY_AND_COMPANY-US201909004792

PATIENT
  Sex: Female

DRUGS (4)
  1. HUMULIN 70/30 [Suspect]
     Active Substance: INSULIN HUMAN
     Dosage: 25 U, BID
     Route: 058
  2. LANTUS [Suspect]
     Active Substance: INSULIN GLARGINE
     Indication: PRODUCT USED FOR UNKNOWN INDICATION
     Dosage: UNK UNK, UNKNOWN
     Route: 065
  3. HUMULIN 70/30 [Suspect]
     Active Substance: INSULIN HUMAN
     Indication: TYPE 2 DIABETES MELLITUS
     Dosage: 16 U, EACH MORNING
     Route: 058
     Dates: start: 2011
  4. HUMULIN 70/30 [Suspect]
     Active Substance: INSULIN HUMAN
     Dosage: 7 U, DAILY
     Route: 058
     Dates: start: 2011

REACTIONS (13)
  - Blood glucose increased [Unknown]
  - Pain [Recovering/Resolving]
  - Hypoacusis [Unknown]
  - Diabetic retinopathy [Not Recovered/Not Resolved]
  - Carotid artery occlusion [Recovering/Resolving]
  - Crystal arthropathy [Unknown]
  - Blood pressure increased [Recovering/Resolving]
  - Feeling abnormal [Unknown]
  - Intestinal obstruction [Recovered/Resolved]
  - Blood glucose decreased [Unknown]
  - Blood glucose increased [Recovering/Resolving]
  - Fibromyalgia [Unknown]
  - Asthma [Unknown]

NARRATIVE: CASE EVENT DATE: 20190909
